FAERS Safety Report 8021686-9 (Version None)
Quarter: 2012Q1

REPORT INFORMATION
  Report Type: 
  Country: None (occurrence: None)
  Receive Date: 20120104
  Receipt Date: 20111223
  Transmission Date: 20120608
  Serious: Yes (Other)
  Sender: FDA-Public Use
  Company Number: PHHY2009CA29648

PATIENT
  Sex: Male

DRUGS (2)
  1. SANDOSTATIN LAR [Suspect]
     Indication: METASTATIC CARCINOID TUMOUR
     Dosage: 40 MG, QMO
     Route: 030
     Dates: start: 20060615
  2. SANDOSTATIN LAR [Suspect]
     Dosage: 40 MG, EVERY 4 WEEKS
     Route: 030

REACTIONS (11)
  - FATIGUE [None]
  - CONFUSIONAL STATE [None]
  - INJECTION SITE HAEMATOMA [None]
  - INJECTION SITE PAIN [None]
  - SCIATICA [None]
  - SCIATIC NERVE INJURY [None]
  - BLOOD PRESSURE SYSTOLIC INCREASED [None]
  - INJECTION SITE SWELLING [None]
  - ASTHENIA [None]
  - MUSCULOSKELETAL PAIN [None]
  - ARTHRALGIA [None]
